FAERS Safety Report 4901687-7 (Version None)
Quarter: 2006Q1

REPORT INFORMATION
  Report Type: 
  Country: None (occurrence: None)
  Receive Date: 20060206
  Receipt Date: 20051102
  Transmission Date: 20060701
  Serious: No
  Sender: FDA-Public Use
  Company Number: US-BRISTOL-MYERS SQUIBB COMPANY-13165709

PATIENT
  Age: 45 Year
  Sex: Female
  Weight: 59 kg

DRUGS (11)
  1. TAXOL [Suspect]
     Indication: OVARIAN CANCER
     Route: 042
     Dates: start: 20051011, end: 20051011
  2. CARBOPLATIN [Concomitant]
  3. ALOXI [Concomitant]
     Indication: PREMEDICATION
  4. DECADRON PHOSPHATE [Concomitant]
     Indication: PREMEDICATION
  5. ZANTAC [Concomitant]
     Indication: PREMEDICATION
  6. BENADRYL [Concomitant]
     Indication: PREMEDICATION
  7. DARVOCET [Concomitant]
  8. LORCET-HD [Concomitant]
  9. CLARITIN [Concomitant]
  10. MEGACE [Concomitant]
  11. COMPAZINE [Concomitant]

REACTIONS (3)
  - DYSPNOEA [None]
  - PAIN [None]
  - TACHYCARDIA [None]
